FAERS Safety Report 6565094-6 (Version None)
Quarter: 2010Q1

REPORT INFORMATION
  Report Type: 
  Country: None (occurrence: None)
  Receive Date: 20100201
  Receipt Date: 20100129
  Transmission Date: 20100710
  Serious: Yes (Hospitalization, Other)
  Sender: FDA-Public Use
  Company Number: PL-ASTRAZENECA-2009SE04110

PATIENT
  Age: 28189 Day
  Sex: Male

DRUGS (13)
  1. BETALOC ZOK [Suspect]
     Indication: ATRIAL FIBRILLATION
     Route: 048
     Dates: end: 20090704
  2. POLFENON [Suspect]
     Indication: ATRIAL FIBRILLATION
     Route: 048
     Dates: start: 20090701, end: 20090703
  3. AZD1305 [Suspect]
     Indication: CARDIOVERSION
     Route: 042
     Dates: start: 20090630, end: 20090630
  4. ACENOCUMAROL [Concomitant]
     Indication: ATRIAL FIBRILLATION
     Route: 048
  5. KALIPOZ [Concomitant]
     Indication: ATRIAL FIBRILLATION
     Route: 048
  6. AXTIL [Concomitant]
     Indication: HYPERTENSION
     Route: 048
  7. TERTENSIF SR [Concomitant]
     Indication: HYPERTENSION
     Route: 048
  8. DIGOXIN [Concomitant]
     Indication: ATRIAL FIBRILLATION
     Route: 048
     Dates: end: 20090621
  9. MAGNE B6 [Concomitant]
     Indication: ATRIAL FIBRILLATION
     Route: 048
  10. MIDANIUM [Concomitant]
     Indication: ANAESTHESIA
     Route: 051
     Dates: start: 20090630, end: 20090630
  11. FENTANYL [Concomitant]
     Indication: ANAESTHESIA
     Route: 051
     Dates: start: 20090630, end: 20090630
  12. THIOPENTAL SODIUM [Concomitant]
     Indication: ANAESTHESIA
     Route: 051
     Dates: start: 20090630, end: 20090630
  13. PROPOFOL [Concomitant]
     Indication: INDUCTION OF ANAESTHESIA
     Route: 051
     Dates: start: 20090630, end: 20090630

REACTIONS (2)
  - ATRIAL FIBRILLATION [None]
  - SINUS BRADYCARDIA [None]
